FAERS Safety Report 10522647 (Version 2)
Quarter: 2015Q1

REPORT INFORMATION
  Report Type: Spontaneous
  Country: ES (occurrence: None)
  Receive Date: 20141014
  Receipt Date: 20150128
  Transmission Date: 20150720
  Serious: Yes (Life-Threatening, Other)
  Sender: FDA-Public Use
  Company Number: Z0015487C

PATIENT
  Age: 50 Year
  Sex: Male
  Weight: 66.9 kg

DRUGS (5)
  1. TIPRANAVR (TIPRANAVR) [Concomitant]
  2. DEXKETOPROFEN (DEXKETOPROFEN) [Concomitant]
  3. OMEPRAZOLE (OMEPRAZOLE) [Concomitant]
     Active Substance: OMEPRAZOLE
  4. DOLUTEGRAVIR [Suspect]
     Active Substance: DOLUTEGRAVIR
     Indication: HIV INFECTION
     Route: 048
     Dates: start: 20120322
  5. TRUVADA [Concomitant]
     Active Substance: EMTRICITABINE\TENOFOVIR DISOPROXIL FUMARATE

REACTIONS (2)
  - Squamous cell carcinoma [None]
  - Lip and/or oral cavity cancer stage IV [None]

NARRATIVE: CASE EVENT DATE: 20131127
